FAERS Safety Report 8730051 (Version 2)
Quarter: 2012Q4

REPORT INFORMATION
  Report Type: Report from Study
  Country: US (occurrence: US)
  Receive Date: 20120817
  Receipt Date: 20121127
  Transmission Date: 20130627
  Serious: Yes (Other)
  Sender: FDA-Public Use
  Company Number: US-ABBOTT-12P-163-0966725-00

PATIENT
  Age: 51 None
  Sex: Male
  Weight: 61.29 kg

DRUGS (7)
  1. HUMIRA 40 MG/0.8 ML PEN [Suspect]
     Indication: CROHN^S DISEASE
     Route: 058
     Dates: start: 20110811, end: 201204
  2. HUMIRA 40 MG/0.8 ML PEN [Suspect]
     Route: 058
     Dates: start: 20120731
  3. ANESTHETICS NOS [Suspect]
     Indication: HERNIA REPAIR
     Dates: start: 201206, end: 201206
  4. TRAMADOL [Suspect]
     Indication: PAIN
     Route: 048
     Dates: start: 20121116
  5. AZULFIDINE [Concomitant]
     Indication: CROHN^S DISEASE
  6. CENTRUM SILVER [Concomitant]
     Indication: VITAMIN SUPPLEMENTATION
     Dosage: Daily
  7. FOLIC ACID [Concomitant]
     Indication: VITAMIN SUPPLEMENTATION
     Dosage: OTC

REACTIONS (5)
  - Inguinal hernia [Recovered/Resolved]
  - Pruritus generalised [Recovered/Resolved]
  - Nephrolithiasis [Not Recovered/Not Resolved]
  - Pruritus generalised [Unknown]
  - Device malfunction [Unknown]
